FAERS Safety Report 22864762 (Version 4)
Quarter: 2023Q4

REPORT INFORMATION
  Report Type: Spontaneous
  Country: JP (occurrence: JP)
  Receive Date: 20230825
  Receipt Date: 20231120
  Transmission Date: 20240110
  Serious: Yes (Other)
  Sender: FDA-Public Use
  Company Number: JP-ABBVIE-5338224

PATIENT
  Age: 25 Year
  Sex: Male
  Weight: 46 kg

DRUGS (5)
  1. RINVOQ [Suspect]
     Active Substance: UPADACITINIB
     Indication: Colitis ulcerative
     Dosage: 30 MILLIGRAM?FORM STRENGTH: 15 MG
     Route: 048
     Dates: start: 20230704, end: 20230720
  2. CLOSTRIDIUM BUTYRICUM SPORES STRAIN M-55 [Concomitant]
     Active Substance: CLOSTRIDIUM BUTYRICUM SPORES STRAIN M-55
     Indication: Diarrhoea
     Dosage: TIME INTERVAL: 0.33333333 DAYS: 3 GRAM
     Route: 048
     Dates: start: 20220625
  3. RABEPRAZOLE SODIUM [Concomitant]
     Active Substance: RABEPRAZOLE SODIUM
     Indication: Gastrooesophageal reflux disease
     Dosage: FORM STRENGTH:10 MILLIGRAM
     Route: 048
     Dates: start: 20221017
  4. FEXOFENADINE HYDROCHLORIDE [Concomitant]
     Active Substance: FEXOFENADINE HYDROCHLORIDE
     Indication: Seasonal allergy
     Dosage: 120 MILLIGRAM
     Route: 048
     Dates: start: 20220701
  5. FILGOTINIB MALEATE [Concomitant]
     Active Substance: FILGOTINIB MALEATE
     Indication: Product used for unknown indication
     Dosage: 2 TABLETS/DAY, 1 TIME/DAY WAS STARTED.

REACTIONS (5)
  - Malaise [Recovering/Resolving]
  - Pyrexia [Recovering/Resolving]
  - Platelet count increased [Recovering/Resolving]
  - Diarrhoea [Recovering/Resolving]
  - Colitis ulcerative [Recovering/Resolving]

NARRATIVE: CASE EVENT DATE: 20230705
